APPROVED DRUG PRODUCT: ROSUVASTATIN CALCIUM
Active Ingredient: ROSUVASTATIN CALCIUM
Strength: EQ 40MG BASE
Dosage Form/Route: TABLET;ORAL
Application: A206513 | Product #004 | TE Code: AB
Applicant: ZHEJIANG JINGXIN PHARMACEUTICAL CO LTD
Approved: Mar 1, 2019 | RLD: No | RS: No | Type: RX